FAERS Safety Report 9776042 (Version 2)
Quarter: 2014Q1

REPORT INFORMATION
  Report Type: Spontaneous
  Country: GB (occurrence: GB)
  Receive Date: 20131220
  Receipt Date: 20140124
  Transmission Date: 20141002
  Serious: Yes (Other)
  Sender: FDA-Public Use
  Company Number: GB-WATSON-2013-23184

PATIENT
  Sex: Male

DRUGS (3)
  1. METFORMIN (UNKNOWN) [Suspect]
     Indication: DIABETES MELLITUS
     Dosage: 1 DF, BID
     Route: 048
  2. GLICLAZIDE (UNKNOWN) [Suspect]
     Indication: PRODUCT USED FOR UNKNOWN INDICATION
     Dosage: UNK
     Route: 065
  3. APROVEL [Suspect]
     Indication: HYPERTENSION
     Dosage: 150 MG, DAILY
     Route: 048
     Dates: start: 20131120

REACTIONS (4)
  - Diabetes mellitus inadequate control [Unknown]
  - Visual impairment [Recovered/Resolved]
  - Halo vision [Recovered/Resolved]
  - Photopsia [Recovered/Resolved]
